APPROVED DRUG PRODUCT: LANABIOTIC
Active Ingredient: BACITRACIN ZINC; LIDOCAINE; NEOMYCIN SULFATE; POLYMYXIN B SULFATE
Strength: 400 UNITS/GM;40MG/GM;EQ 5MG BASE/GM;5,000 UNITS/GM
Dosage Form/Route: OINTMENT;TOPICAL
Application: A062499 | Product #001
Applicant: COMBE INC
Approved: Jun 3, 1985 | RLD: No | RS: No | Type: DISCN